FAERS Safety Report 15084797 (Version 2)
Quarter: 2019Q1

REPORT INFORMATION
  Report Type: Report from Study
  Country: US (occurrence: US)
  Receive Date: 20180628
  Receipt Date: 20190319
  Transmission Date: 20190417
  Serious: Yes (Hospitalization)
  Sender: FDA-Public Use
  Company Number: US-ACTELION-A-NJ2018-168565

PATIENT
  Sex: Female
  Weight: 53.52 kg

DRUGS (3)
  1. TRACLEER [Suspect]
     Active Substance: BOSENTAN
     Indication: PULMONARY ARTERIAL HYPERTENSION
     Dosage: 125 MG, BID
     Route: 048
     Dates: start: 20180619
  2. XARELTO [Concomitant]
     Active Substance: RIVAROXABAN
  3. REVATIO [Concomitant]
     Active Substance: SILDENAFIL CITRATE

REACTIONS (8)
  - Hospitalisation [Unknown]
  - Loss of consciousness [Unknown]
  - Oxygen consumption increased [Unknown]
  - Presyncope [Unknown]
  - Wheezing [Unknown]
  - Product dose omission [Unknown]
  - Cough [Unknown]
  - Dyspnoea [Unknown]
